FAERS Safety Report 6913672-4 (Version None)
Quarter: 2010Q3

REPORT INFORMATION
  Report Type: 
  Country: None (occurrence: None)
  Receive Date: 20100719
  Receipt Date: 20090317
  Transmission Date: 20110219
  Serious: No
  Sender: FDA-Public Use
  Company Number: 2009-01057

PATIENT
  Sex: Female
  Weight: 58.9676 kg

DRUGS (4)
  1. ZICAM COLD REMEDY GEL SWABS [Suspect]
     Dosage: QID X 3 DAYS
     Dates: start: 20090306, end: 20090309
  2. LISINOPRIL [Concomitant]
  3. CORAG [Concomitant]
  4. ASPIRIN [Concomitant]

REACTIONS (3)
  - AGEUSIA [None]
  - ANOSMIA [None]
  - BURNING SENSATION [None]
